FAERS Safety Report 11989122 (Version 2)
Quarter: 2016Q2

REPORT INFORMATION
  Report Type: Spontaneous
  Country: US (occurrence: US)
  Receive Date: 20160202
  Receipt Date: 20160427
  Transmission Date: 20160815
  Serious: Yes (Hospitalization, Other)
  Sender: FDA-Public Use
  Company Number: US-PFIZER INC-2016052106

PATIENT
  Age: 62 Year
  Sex: Male

DRUGS (7)
  1. DEPO-TESTOSTERONE [Suspect]
     Active Substance: TESTOSTERONE CYPIONATE
     Indication: HORMONE REPLACEMENT THERAPY
     Dosage: UNK
  2. TESTOSTERONE CIPIONATE [Suspect]
     Active Substance: TESTOSTERONE
     Indication: BLOOD TESTOSTERONE DECREASED
     Dosage: 1 ML (200 MG/ML), EVERY 2 WEEKS
     Route: 030
     Dates: start: 20120926, end: 20121111
  3. FORTESTA [Suspect]
     Active Substance: TESTOSTERONE
     Indication: HORMONE REPLACEMENT THERAPY
     Dosage: UNK, 1X/DAY (5 DAYS PER WEEK)
     Dates: start: 20120523, end: 20120901
  4. DEPO-TESTOSTERONE [Suspect]
     Active Substance: TESTOSTERONE CYPIONATE
     Indication: BLOOD TESTOSTERONE DECREASED
  5. TESTOSTERONE CIPIONATE [Suspect]
     Active Substance: TESTOSTERONE
     Indication: HORMONE REPLACEMENT THERAPY
     Dosage: UNK
     Dates: start: 20120919
  6. TESTIM [Suspect]
     Active Substance: TESTOSTERONE
     Indication: HORMONE REPLACEMENT THERAPY
     Dosage: UNK, 1X/DAY
     Dates: start: 20110124, end: 20110615
  7. TESTOSTERONE CIPIONATE [Suspect]
     Active Substance: TESTOSTERONE
     Dosage: 0.5 ML, WEEKLY (100 MG/0.5 ML ONCE PER WEEK)
     Dates: start: 20121112, end: 20130125

REACTIONS (4)
  - Cardiac disorder [Unknown]
  - Amnesia [Not Recovered/Not Resolved]
  - Cerebrovascular accident [Unknown]
  - Disturbance in attention [Not Recovered/Not Resolved]

NARRATIVE: CASE EVENT DATE: 20131118
